FAERS Safety Report 8986666 (Version 1)
Quarter: 2012Q4

REPORT INFORMATION
  Report Type: Spontaneous
  Country: US (occurrence: None)
  Receive Date: 20121219
  Receipt Date: 20121219
  Transmission Date: 20130627
  Serious: Yes (Other)
  Sender: FDA-Public Use
  Company Number: None

PATIENT
  Age: 56 Year
  Sex: Male
  Weight: 82.56 kg

DRUGS (1)
  1. TOVIAZ [Suspect]
     Indication: OVERACTIVE BLADDER
     Route: 048
     Dates: start: 20121128, end: 20121210

REACTIONS (3)
  - Abdominal pain [None]
  - Abdominal pain [None]
  - Diarrhoea [None]
